FAERS Safety Report 14392855 (Version 1)
Quarter: 2018Q1

REPORT INFORMATION
  Report Type: Spontaneous
  Country: US (occurrence: US)
  Receive Date: 20180113
  Receipt Date: 20180113
  Transmission Date: 20180509
  Serious: Yes (Disabling)
  Sender: FDA-Public Use
  Company Number: None

PATIENT
  Sex: Male
  Weight: 9 kg

DRUGS (2)
  1. TYLENOL SUPPOSITORY [Concomitant]
  2. OSELTAMIVIR PHOSPHATE. [Suspect]
     Active Substance: OSELTAMIVIR PHOSPHATE
     Indication: INFLUENZA
     Dosage: ?          QUANTITY:5 ML;?
     Route: 048
     Dates: start: 20180112, end: 20180112

REACTIONS (1)
  - Body temperature decreased [None]

NARRATIVE: CASE EVENT DATE: 20180112
